FAERS Safety Report 20144160 (Version 2)
Quarter: 2022Q1

REPORT INFORMATION
  Report Type: Report from Study
  Country: JP (occurrence: JP)
  Receive Date: 20211203
  Receipt Date: 20220228
  Transmission Date: 20220424
  Serious: Yes (Other)
  Sender: FDA-Public Use
  Company Number: JP-INSMED, INC.-2021-09178-JP

PATIENT
  Sex: Female

DRUGS (2)
  1. ARIKAYCE [Suspect]
     Active Substance: AMIKACIN
     Indication: Atypical mycobacterial infection
     Dosage: UNK
     Route: 055
     Dates: start: 20210731, end: 20210813
  2. ARIKAYCE [Suspect]
     Active Substance: AMIKACIN
     Dosage: UNK
     Route: 055
     Dates: start: 2021, end: 20210905

REACTIONS (7)
  - Laryngeal obstruction [Recovered/Resolved]
  - Salivary hypersecretion [Unknown]
  - Oropharyngeal pain [Recovered/Resolved]
  - Cough [Unknown]
  - Aphonia [Not Recovered/Not Resolved]
  - Dysphonia [Unknown]
  - Product dose omission in error [Unknown]

NARRATIVE: CASE EVENT DATE: 20210101
